FAERS Safety Report 4737351-7 (Version None)
Quarter: 2005Q3

REPORT INFORMATION
  Report Type: 
  Country: None (occurrence: None)
  Receive Date: 20050805
  Receipt Date: 20050725
  Transmission Date: 20060218
  Serious: Yes (Hospitalization, Other)
  Sender: FDA-Public Use
  Company Number: 2005106633

PATIENT
  Age: 78 Year
  Sex: Female
  Weight: 64.8644 kg

DRUGS (6)
  1. XALATAN [Suspect]
     Indication: GLAUCOMA
     Dosage: 3 MCG (1.5 MCG EVERY NIGHT, OPHTHALMIC
     Route: 047
     Dates: start: 20020101
  2. BEXTRA [Suspect]
     Indication: RHEUMATOID ARTHRITIS
     Dates: start: 20010101
  3. TYLENOL [Concomitant]
  4. GOLD [Concomitant]
  5. HYDROCHLOROTHIAZIDE [Concomitant]
  6. INDERAL ^WYETH-AYERST^ (PROPRANOLOL HYDROCHLORIDE) [Concomitant]

REACTIONS (9)
  - CONDITION AGGRAVATED [None]
  - HYPOAESTHESIA [None]
  - IATROGENIC INJURY [None]
  - KNEE ARTHROPLASTY [None]
  - NERVE INJURY [None]
  - PROCEDURAL COMPLICATION [None]
  - SJOGREN'S SYNDROME [None]
  - THERAPEUTIC RESPONSE UNEXPECTED [None]
  - TIBIA FRACTURE [None]
